FAERS Safety Report 8054986-7 (Version None)
Quarter: 2012Q1

REPORT INFORMATION
  Report Type: 
  Country: None (occurrence: None)
  Receive Date: 20120119
  Receipt Date: 20120113
  Transmission Date: 20120608
  Serious: Yes (Hospitalization, Other)
  Sender: FDA-Public Use
  Company Number: FR-PFIZER INC-2012010149

PATIENT
  Age: 81 Year
  Sex: Male

DRUGS (9)
  1. MODOPAR [Concomitant]
  2. REQUIP [Concomitant]
     Dosage: 8 MG, UNK
  3. TRAMADOL HCL [Concomitant]
  4. ADANCOR [Concomitant]
  5. RAMIPRIL [Concomitant]
  6. ASPEGIC 325 [Concomitant]
  7. SUTENT [Suspect]
     Indication: RENAL CANCER METASTATIC
     Dosage: 25 MG, 1X/DAY
     Route: 048
     Dates: start: 20111103, end: 20111123
  8. NOVOLOG MIX 70/30 [Concomitant]
  9. BUMETANIDE [Concomitant]

REACTIONS (8)
  - GENERAL PHYSICAL HEALTH DETERIORATION [None]
  - WEIGHT DECREASED [None]
  - HAEMOPTYSIS [None]
  - BONE MARROW FAILURE [None]
  - SEPSIS [None]
  - ASTHENIA [None]
  - ACUTE PULMONARY OEDEMA [None]
  - DECREASED APPETITE [None]
